FAERS Safety Report 6127352-9 (Version None)
Quarter: 2009Q1

REPORT INFORMATION
  Report Type: 
  Country: None (occurrence: None)
  Receive Date: 20090319
  Receipt Date: 20090219
  Transmission Date: 20090719
  Serious: Yes (Hospitalization)
  Sender: FDA-Public Use
  Company Number: 211503

PATIENT
  Age: 60 Year
  Sex: Female
  Weight: 82 kg

DRUGS (8)
  1. LEUCOVORIN CALCIUM [Suspect]
     Indication: COLORECTAL CANCER METASTATIC
     Dosage: INTRAVENOUS
     Route: 042
     Dates: start: 20081222
  2. FLUOROURACIL [Suspect]
     Indication: COLORECTAL CANCER METASTATIC
     Dosage: INTRAVENOUS
     Route: 042
     Dates: start: 20081222
  3. IRINOTECAN HCL [Suspect]
     Indication: COLORECTAL CANCER METASTATIC
     Dosage: 12.86 MG/M2, 12.8571 MG/M2 (180MQ/M2, 1 IN 2 WK, INTRAVENOUS
     Route: 042
     Dates: start: 20081222
  4. SUNITINIB [Suspect]
     Indication: COLORECTAL CANCER METASTATIC
     Dosage: 37.5 MG/M2, 1 IN 1 DAY, ORAL; 25 MG/M2, 1 IN 1 DAY, ORAL
     Route: 048
     Dates: start: 20081222, end: 20090107
  5. SUNITINIB [Suspect]
     Indication: COLORECTAL CANCER METASTATIC
     Dosage: 37.5 MG/M2, 1 IN 1 DAY, ORAL; 25 MG/M2, 1 IN 1 DAY, ORAL
     Route: 048
     Dates: start: 20090108
  6. METFORMIN HYDROCHLORIDE [Concomitant]
  7. DIOVAN HCT [Concomitant]
  8. MORPHINE SULPHATE BP [Concomitant]

REACTIONS (1)
  - PULMONARY EMBOLISM [None]
